FAERS Safety Report 9400565 (Version 1)
Quarter: 2013Q3

REPORT INFORMATION
  Report Type: Spontaneous
  Country: US (occurrence: US)
  Receive Date: 20130715
  Receipt Date: 20130715
  Transmission Date: 20140515
  Serious: Yes (Death)
  Sender: FDA-Public Use
  Company Number: US-INCYTE CORPORATION-2013IN001503

PATIENT
  Age: 75 Year
  Sex: Female

DRUGS (4)
  1. JAKAFI [Suspect]
     Indication: MYELODYSPLASTIC SYNDROME
     Dosage: 20 MG, BID
     Route: 048
  2. ALLOPURINOL [Concomitant]
  3. ATENOLOL [Concomitant]
  4. HYDROXYUREA [Concomitant]

REACTIONS (1)
  - Death [Fatal]
